FAERS Safety Report 7820139 (Version 3)
Quarter: 2013Q2

REPORT INFORMATION
  Report Type: Spontaneous
  Country: US (occurrence: US)
  Receive Date: 20110221
  Receipt Date: 20130618
  Transmission Date: 20140414
  Serious: Yes (Other)
  Sender: FDA-Public Use
  Company Number: US-ROCHE-735435

PATIENT
  Age: 35 Year
  Sex: Male
  Weight: 97.5 kg

DRUGS (5)
  1. ACCUTANE [Suspect]
     Indication: ACNE
     Route: 065
     Dates: start: 19920506, end: 19920615
  2. ACCUTANE [Suspect]
     Route: 065
     Dates: start: 19930624, end: 19930723
  3. ACCUTANE [Suspect]
     Route: 065
     Dates: start: 19930823, end: 19930921
  4. ACCUTANE [Suspect]
     Route: 065
     Dates: start: 19931002, end: 19931030
  5. ACCUTANE [Suspect]
     Route: 065

REACTIONS (10)
  - Colitis ulcerative [Unknown]
  - Rectal haemorrhage [Unknown]
  - Abdominal pain [Unknown]
  - Nausea [Unknown]
  - Inflammatory bowel disease [Unknown]
  - Large intestine polyp [Unknown]
  - Diverticulitis [Unknown]
  - Hypertrophic anal papilla [Unknown]
  - Anal fissure [Recovered/Resolved]
  - Blood triglycerides increased [Unknown]
